FAERS Safety Report 12229861 (Version 3)
Quarter: 2016Q3

REPORT INFORMATION
  Report Type: Spontaneous
  Country: US (occurrence: US)
  Receive Date: 20160401
  Receipt Date: 20160810
  Transmission Date: 20161109
  Serious: Yes (Death, Hospitalization)
  Sender: FDA-Public Use
  Company Number: US-JNJFOC-20160313616

PATIENT
  Age: 65 Year
  Sex: Female

DRUGS (2)
  1. XARELTO [Suspect]
     Active Substance: RIVAROXABAN
     Indication: DEEP VEIN THROMBOSIS
     Dosage: 15MG + 20 MG
     Route: 048
     Dates: start: 20141107, end: 201501
  2. XARELTO [Suspect]
     Active Substance: RIVAROXABAN
     Indication: DEEP VEIN THROMBOSIS
     Route: 048
     Dates: start: 201408

REACTIONS (3)
  - Cerebrovascular accident [Fatal]
  - Fall [Fatal]
  - Haemorrhagic stroke [Fatal]

NARRATIVE: CASE EVENT DATE: 20150120
